FAERS Safety Report 5203957-4 (Version None)
Quarter: 2007Q1

REPORT INFORMATION
  Report Type: 
  Country: None (occurrence: None)
  Receive Date: 20070105
  Receipt Date: 20070105
  Transmission Date: 20070707
  Serious: No
  Sender: FDA-Public Use
  Company Number: None

PATIENT
  Age: 61 Year
  Sex: Male
  Weight: 90.7194 kg

DRUGS (1)
  1. ANECTINE [Suspect]
     Indication: VOCAL CORD POLYP
     Dosage: 100MG IV
     Route: 042
     Dates: start: 20061221, end: 20061223

REACTIONS (4)
  - BACK PAIN [None]
  - CONDITION AGGRAVATED [None]
  - MYALGIA [None]
  - POST PROCEDURAL COMPLICATION [None]
